FAERS Safety Report 8480772-X (Version None)
Quarter: 2012Q2

REPORT INFORMATION
  Report Type: 
  Country: None (occurrence: None)
  Receive Date: 20120626
  Receipt Date: 20120626
  Transmission Date: 20120825
  Serious: Yes (Hospitalization)
  Sender: FDA-Public Use
  Company Number: None

PATIENT
  Sex: Male
  Weight: 52.8 kg

DRUGS (7)
  1. PRADAXA [Suspect]
     Indication: ATRIAL FIBRILLATION
     Dosage: 150 MG Q 12 HRS PO
     Route: 048
     Dates: start: 20101201, end: 20120621
  2. COREG [Concomitant]
  3. DRONEDARONE HCL [Concomitant]
  4. TRAMADOL HCL [Concomitant]
  5. FERROUS SULFATE TAB [Concomitant]
  6. CRESTOR [Concomitant]
  7. MAGNESIUM OXIDE [Concomitant]

REACTIONS (8)
  - PAIN [None]
  - RHINALGIA [None]
  - WOUND SECRETION [None]
  - FALL [None]
  - ABDOMINAL INJURY [None]
  - HAEMOTHORAX [None]
  - EXCORIATION [None]
  - COAGULOPATHY [None]
